FAERS Safety Report 5285654-2 (Version None)
Quarter: 2007Q1

REPORT INFORMATION
  Report Type: 
  Country: None (occurrence: None)
  Receive Date: 20070116
  Receipt Date: 20061204
  Transmission Date: 20070707
  Serious: No
  Sender: FDA-Public Use
  Company Number: 2006SP004241

PATIENT
  Age: 83 Year
  Sex: Male
  Weight: 95.2554 kg

DRUGS (7)
  1. LUNESTA [Suspect]
     Indication: INSOMNIA
     Dosage: 2 MG;ORAL
     Route: 048
     Dates: start: 20061101, end: 20060101
  2. ATIVAN [Concomitant]
  3. ALTACE [Concomitant]
  4. SIMVASTATIN [Concomitant]
  5. WARFARIN SODIUM [Concomitant]
  6. VERAPAMIL [Concomitant]
  7. OTHER OPHTHALMOLOGICALS [Concomitant]

REACTIONS (2)
  - DIZZINESS [None]
  - MALAISE [None]
